FAERS Safety Report 6231449-2 (Version None)
Quarter: 2009Q2

REPORT INFORMATION
  Report Type: 
  Country: None (occurrence: None)
  Receive Date: 20090611
  Receipt Date: 20090611
  Transmission Date: 20091009
  Serious: No
  Sender: FDA-Public Use
  Company Number: None

PATIENT
  Age: 45 Year
  Sex: Female
  Weight: 64.8644 kg

DRUGS (1)
  1. ALDARA [Suspect]
     Indication: BASAL CELL CARCINOMA
     Dosage: VERY SMALL AMONT NIGHTLY
     Dates: start: 20090528, end: 20090603

REACTIONS (10)
  - FATIGUE [None]
  - FEELING ABNORMAL [None]
  - HEADACHE [None]
  - LYMPHADENOPATHY [None]
  - OPEN WOUND [None]
  - PAIN OF SKIN [None]
  - PRURITUS [None]
  - SKIN DISCOLOURATION [None]
  - SKIN SWELLING [None]
  - SKIN ULCER [None]
